FAERS Safety Report 7219890-2 (Version None)
Quarter: 2011Q1

REPORT INFORMATION
  Report Type: 
  Country: None (occurrence: None)
  Receive Date: 20110111
  Receipt Date: 20110104
  Transmission Date: 20110831
  Serious: Yes (Death, Other)
  Sender: FDA-Public Use
  Company Number: US-ROCHE-752296

PATIENT
  Sex: Female

DRUGS (5)
  1. AVASTIN [Suspect]
     Route: 065
     Dates: start: 20081219
  2. CARBOPLATIN [Concomitant]
  3. TAXOL [Concomitant]
  4. ZOMETA [Concomitant]
  5. TARCEVA [Suspect]
     Route: 048
     Dates: end: 20100429

REACTIONS (2)
  - DEATH [None]
  - ANAEMIA [None]
